FAERS Safety Report 8334855 (Version 2)
Quarter: 2012Q4

REPORT INFORMATION
  Report Type: 
  Country: US (occurrence: US)
  Receive Date: 20120112
  Receipt Date: 20120927
  Transmission Date: 20130627
  Serious: Yes (Other)
  Sender: FDA-Public Use
  Company Number: US-GLAXOSMITHKLINE-A0815652A

PATIENT
  Age: 54 None
  Sex: Male
  Weight: 137.7 kg

DRUGS (9)
  1. AVANDIA [Suspect]
     Indication: DIABETES MELLITUS
     Dosage: 4MG Twice per day
     Route: 048
     Dates: start: 200505, end: 20070912
  2. AVANDAMET [Suspect]
     Indication: DIABETES MELLITUS
     Route: 048
     Dates: start: 200401, end: 200412
  3. ACTOS [Concomitant]
     Dates: start: 20070912
  4. METFORMIN [Concomitant]
  5. GLIPIZIDE [Concomitant]
  6. PHENYTOIN [Concomitant]
  7. DIOVAN HCT [Concomitant]
  8. CADUET [Concomitant]
  9. CELEBREX [Concomitant]

REACTIONS (3)
  - Cerebrovascular accident [Not Recovered/Not Resolved]
  - Visual acuity reduced [Unknown]
  - Thrombosis [Unknown]
